FAERS Safety Report 6294425-X (Version None)
Quarter: 2009Q3

REPORT INFORMATION
  Report Type: 
  Country: None (occurrence: None)
  Receive Date: 20090803
  Receipt Date: 20090722
  Transmission Date: 20100115
  Serious: Yes (Disabling)
  Sender: FDA-Public Use
  Company Number: GR-ROCHE-645750

PATIENT
  Age: 60 Year
  Sex: Female

DRUGS (1)
  1. BONIVA [Suspect]
     Indication: OSTEOPOROSIS
     Route: 048
     Dates: start: 20090701

REACTIONS (6)
  - BONE PAIN [None]
  - DIARRHOEA [None]
  - HEADACHE [None]
  - IRRITABLE BOWEL SYNDROME [None]
  - MUSCULAR WEAKNESS [None]
  - NAUSEA [None]
